FAERS Safety Report 21080411 (Version 1)
Quarter: 2022Q3

REPORT INFORMATION
  Report Type: Spontaneous
  Country: DE (occurrence: DE)
  Receive Date: 20220714
  Receipt Date: 20220714
  Transmission Date: 20221026
  Serious: Yes (Death, Life-Threatening, Other)
  Sender: FDA-Public Use
  Company Number: DE-CHEPLA-C20200758

PATIENT
  Age: 15 Year
  Sex: Female

DRUGS (5)
  1. MELPHALAN [Suspect]
     Active Substance: MELPHALAN
     Indication: Alveolar rhabdomyosarcoma
     Dosage: UNKNOWN
     Route: 065
  2. ETOPOSIDE [Suspect]
     Active Substance: ETOPOSIDE
     Indication: Alveolar rhabdomyosarcoma
     Dosage: UNKNOWN
     Route: 065
  3. ICE [Suspect]
     Active Substance: MENTHOL
     Indication: Rhabdomyosarcoma recurrent
     Dosage: 75 MILLIGRAM/SQ. METER(ETOPOSIDE (75 MG/M2) ON DAY 1 AND DAY 3 (25% REDUCED DOSE OF THE ICE REGIMEN)
     Route: 065
     Dates: start: 20110223, end: 20111012
  4. CYCLOPHOSPHAMIDE [Suspect]
     Active Substance: CYCLOPHOSPHAMIDE
     Indication: Alveolar rhabdomyosarcoma
     Dosage: UNKNOWN
     Route: 065
  5. THIOTEPA [Suspect]
     Active Substance: THIOTEPA
     Indication: Alveolar rhabdomyosarcoma
     Dosage: UNKNOWN
     Route: 065

REACTIONS (9)
  - Rhabdomyosarcoma recurrent [Fatal]
  - Erythema [Recovered/Resolved]
  - Acute graft versus host disease [Recovered/Resolved]
  - Cholestasis [Recovered/Resolved]
  - Ascites [Recovered/Resolved]
  - Ocular icterus [Recovered/Resolved]
  - Sepsis [Unknown]
  - Malignant neoplasm progression [Recovered/Resolved]
  - Product use in unapproved indication [Recovered/Resolved]

NARRATIVE: CASE EVENT DATE: 20090501
